FAERS Safety Report 24579921 (Version 1)
Quarter: 2024Q4

REPORT INFORMATION
  Report Type: Report from Study
  Country: PK (occurrence: PK)
  Receive Date: 20241105
  Receipt Date: 20241105
  Transmission Date: 20250115
  Serious: Yes (Death)
  Sender: MYLAN
  Company Number: PK-MYLANLABS-2024M1099546

PATIENT
  Age: 66 Year
  Sex: Female
  Weight: 46.6 kg

DRUGS (5)
  1. PRETOMANID [Suspect]
     Active Substance: PRETOMANID
     Indication: Tuberculosis
     Dosage: 200 MILLIGRAM (200M, PO)
     Route: 048
     Dates: start: 20240620
  2. BEDAQUILINE [Suspect]
     Active Substance: BEDAQUILINE
     Indication: Tuberculosis
     Dosage: 200 MILLIGRAM, 3XW (200MG 3 TIMES A WEEK, PO)
     Route: 065
     Dates: start: 20240620
  3. LINEZOLID [Suspect]
     Active Substance: LINEZOLID
     Indication: Tuberculosis
     Dosage: 600 MILLIGRAM (600MG, PO)
     Route: 048
     Dates: start: 20240620
  4. MOXIFLOXACIN [Suspect]
     Active Substance: MOXIFLOXACIN
     Indication: Tuberculosis
     Dosage: 400 MILLIGRAM (400MG, PO)
     Route: 048
     Dates: start: 20240620
  5. TRAMADOL [Concomitant]
     Active Substance: TRAMADOL
     Indication: Pain
     Dosage: 50 MILLIGRAM, QD (50MG, IM, ONCE A DAY)
     Route: 030
     Dates: start: 20241001

REACTIONS (1)
  - Death [Fatal]

NARRATIVE: CASE EVENT DATE: 20241030
